FAERS Safety Report 5749955-3 (Version None)
Quarter: 2008Q2

REPORT INFORMATION
  Report Type: 
  Country: None (occurrence: None)
  Receive Date: 20080521
  Receipt Date: 20080521
  Transmission Date: 20081010
  Serious: Yes (Hospitalization)
  Sender: FDA-Public Use
  Company Number: None

PATIENT
  Age: 57 Year
  Sex: Male
  Weight: 102.97 kg

DRUGS (1)
  1. LISINOPRIL [Suspect]
     Indication: HYPERTENSION
     Dosage: 20 MG EVERY DAY PO
     Route: 048
     Dates: start: 20080319, end: 20080321

REACTIONS (4)
  - BLOOD PRESSURE INCREASED [None]
  - DIASTOLIC DYSFUNCTION [None]
  - LEFT VENTRICULAR HYPERTROPHY [None]
  - SYNCOPE [None]
